FAERS Safety Report 24344505 (Version 1)
Quarter: 2024Q3

REPORT INFORMATION
  Report Type: Spontaneous
  Country: IN (occurrence: IN)
  Receive Date: 20240920
  Receipt Date: 20240920
  Transmission Date: 20241017
  Serious: Yes (Other)
  Sender: PAREXEL
  Company Number: US-COHERUS BIOSCIENCES, INC-2024-COH-US000942

PATIENT

DRUGS (4)
  1. ADALIMUMAB [Suspect]
     Active Substance: ADALIMUMAB
     Indication: Vasculitis
     Dosage: 40 MG, Q2WEEKS
  2. ADALIMUMAB [Suspect]
     Active Substance: ADALIMUMAB
     Indication: Autoinflammation with infantile enterocolitis
  3. ADALIMUMAB [Suspect]
     Active Substance: ADALIMUMAB
     Indication: Immunodeficiency
  4. ADALIMUMAB [Suspect]
     Active Substance: ADALIMUMAB
     Indication: Congenital haematological disorder

REACTIONS (3)
  - Depressed mood [Recovering/Resolving]
  - Depression [Recovering/Resolving]
  - Off label use [Unknown]
